FAERS Safety Report 9798502 (Version 4)
Quarter: 2014Q2

REPORT INFORMATION
  Report Type: Report from Study
  Country: US (occurrence: US)
  Receive Date: 20140106
  Receipt Date: 20140523
  Transmission Date: 20141212
  Serious: Yes (Life-Threatening, Other)
  Sender: FDA-Public Use
  Company Number: US-ALEXION-A201304665

PATIENT
  Sex: 0

DRUGS (8)
  1. SOLIRIS [Suspect]
     Indication: PAROXYSMAL NOCTURNAL HAEMOGLOBINURIA
     Dosage: 900 MG, Q2W
     Route: 042
     Dates: start: 20110823
  2. SOLIRIS [Suspect]
     Dosage: 900 MG, Q12D
  3. DANAZOL [Concomitant]
     Indication: STEROID THERAPY
     Dosage: 200 MG, BID
     Route: 065
     Dates: start: 20080101
  4. FOLIC ACID [Concomitant]
     Indication: PRODUCT USED FOR UNKNOWN INDICATION
     Dosage: UNK
     Route: 065
     Dates: start: 20080101
  5. ATENOLOL [Concomitant]
     Indication: HYPERTENSION
     Dosage: 25 MG, QD
     Route: 065
     Dates: start: 20080601
  6. LASIX                              /00032601/ [Concomitant]
     Indication: DIURETIC THERAPY
     Dosage: 20 MG, QD
     Route: 065
     Dates: start: 20110810
  7. LISINOPRIL [Concomitant]
     Indication: HYPERTELORISM OF ORBIT
     Dosage: 20 MG, QD
     Route: 065
     Dates: start: 20110810
  8. CYCLOSPORIN [Concomitant]
     Indication: IMMUNOSUPPRESSION
     Dosage: UNK
     Route: 065
     Dates: start: 20120301

REACTIONS (10)
  - Packed red blood cell transfusion [Unknown]
  - Blood product transfusion dependent [Not Recovered/Not Resolved]
  - Anaemia [Not Recovered/Not Resolved]
  - Condition aggravated [Not Recovered/Not Resolved]
  - Iron overload [Unknown]
  - Blood lactate dehydrogenase increased [Not Recovered/Not Resolved]
  - Fibrin degradation products [Not Recovered/Not Resolved]
  - Drug effect decreased [Not Recovered/Not Resolved]
  - Inappropriate schedule of drug administration [Not Recovered/Not Resolved]
  - Fatigue [Unknown]
